FAERS Safety Report 9014115 (Version 4)
Quarter: 2013Q2

REPORT INFORMATION
  Report Type: Spontaneous
  Country: US (occurrence: US)
  Receive Date: 20130115
  Receipt Date: 20130605
  Transmission Date: 20140414
  Serious: Yes (Hospitalization)
  Sender: FDA-Public Use
  Company Number: US-B.I. PHARMACEUTICALS,INC./RIDGEFIELD-2013-BI-00532BP

PATIENT
  Age: 82 Year
  Sex: Female
  Weight: 91 kg

DRUGS (16)
  1. PRADAXA [Suspect]
     Indication: HEART RATE IRREGULAR
     Dosage: 300 MG
     Route: 048
     Dates: start: 201205
  2. PRADAXA [Suspect]
     Indication: ATRIAL FIBRILLATION
     Dosage: 300 MG
     Route: 048
     Dates: start: 201207
  3. SYNTHROID [Concomitant]
     Indication: HYPOTHYROIDISM
     Dosage: 100 MCG
     Route: 048
  4. SOTALOL [Concomitant]
     Indication: HEART RATE IRREGULAR
     Dosage: 80 MG
     Route: 048
  5. LIPITOR [Concomitant]
     Indication: BLOOD CHOLESTEROL INCREASED
     Dosage: 40 MG
     Route: 048
  6. DILTIAZEM [Concomitant]
     Indication: HYPERTENSION
     Dosage: 240 MG
     Route: 048
  7. NPH 70/30 [Concomitant]
     Indication: DIABETES MELLITUS
     Dosage: 45 U
     Route: 058
  8. TEMAZEPAM [Concomitant]
     Indication: SLEEP DISORDER
     Dosage: 15 MG
     Route: 048
  9. FUROSEMIDE [Concomitant]
     Indication: FLUID RETENTION
     Dosage: 40 MG
     Route: 048
  10. METFORMIN XR [Concomitant]
     Indication: DIABETES MELLITUS
     Dosage: 1000 MG
     Route: 048
  11. WELLBUTRIN [Concomitant]
     Indication: DEPRESSION
     Dosage: 100 MG
     Route: 048
  12. XANAX [Concomitant]
     Indication: ANXIETY
     Dosage: 0.75 MG
     Route: 048
  13. POTASSIUM CHLORIDE [Concomitant]
     Indication: BLOOD POTASSIUM DECREASED
     Dosage: 10 MEQ
     Route: 048
  14. FIBER POWDER [Concomitant]
     Indication: CONSTIPATION
     Dosage: DAILY DOSE: 2 TSP
     Route: 048
  15. LACTULOSE [Concomitant]
     Indication: CONSTIPATION
     Dosage: FORMULATION: LIQUID, DAILY DOSE: 2 TBLS
     Route: 048
  16. KOMBIGLYZE [Concomitant]
     Indication: DIABETES MELLITUS
     Route: 048

REACTIONS (3)
  - Cerebrovascular accident [Recovered/Resolved with Sequelae]
  - Cerebrovascular accident [Recovered/Resolved]
  - Blood glucose increased [Recovered/Resolved]
